FAERS Safety Report 6130040-6 (Version None)
Quarter: 2009Q1

REPORT INFORMATION
  Report Type: 
  Country: None (occurrence: None)
  Receive Date: 20090324
  Receipt Date: 20090319
  Transmission Date: 20090719
  Serious: Yes (Life-Threatening, Hospitalization)
  Sender: FDA-Public Use
  Company Number: CH-CELGENEUS-151-21880-09031219

PATIENT
  Sex: Female

DRUGS (2)
  1. REVLIMID [Suspect]
     Route: 048
     Dates: start: 20070101, end: 20081101
  2. REVLIMID [Suspect]
     Route: 048
     Dates: start: 20090101

REACTIONS (1)
  - PULMONARY ALVEOLAR HAEMORRHAGE [None]
